FAERS Safety Report 14346682 (Version 1)
Quarter: 2018Q1

REPORT INFORMATION
  Report Type: Spontaneous
  Country: US (occurrence: US)
  Receive Date: 20180103
  Receipt Date: 20180103
  Transmission Date: 20180509
  Serious: Yes (Death, Other)
  Sender: FDA-Public Use
  Company Number: US-009507513-1712USA014641

PATIENT
  Age: 60 Year
  Sex: Male

DRUGS (6)
  1. ETHYL SALICYLATE. [Suspect]
     Active Substance: ETHYL SALICYLATE
  2. CARVEDILOL. [Suspect]
     Active Substance: CARVEDILOL
  3. HYDROCODONE [Suspect]
     Active Substance: HYDROCODONE
  4. ATORVASTATIN [Suspect]
     Active Substance: ATORVASTATIN
  5. PRINIVIL [Suspect]
     Active Substance: LISINOPRIL
     Route: 048
  6. VITAMIN D [Suspect]
     Active Substance: CHOLECALCIFEROL

REACTIONS (1)
  - Death [Fatal]
